FAERS Safety Report 11743803 (Version 2)
Quarter: 2015Q4

REPORT INFORMATION
  Report Type: Report from Study
  Country: CO (occurrence: CO)
  Receive Date: 20151116
  Receipt Date: 20151127
  Transmission Date: 20160304
  Serious: Yes (Hospitalization)
  Sender: FDA-Public Use
  Company Number: CO-ABBVIE-15K-036-1490160-00

PATIENT
  Age: 51 Year
  Sex: Female
  Weight: 85 kg

DRUGS (1)
  1. HUMIRA [Suspect]
     Active Substance: ADALIMUMAB
     Indication: RHEUMATOID ARTHRITIS
     Route: 058
     Dates: start: 20120517, end: 20151009

REACTIONS (12)
  - Systemic lupus erythematosus [Not Recovered/Not Resolved]
  - Rash macular [Recovering/Resolving]
  - Deep vein thrombosis [Not Recovered/Not Resolved]
  - Pleural effusion [Recovering/Resolving]
  - Rash [Not Recovered/Not Resolved]
  - Feeling hot [Not Recovered/Not Resolved]
  - Swelling [Not Recovered/Not Resolved]
  - Muscle spasms [Not Recovered/Not Resolved]
  - Rectal haemorrhage [Not Recovered/Not Resolved]
  - Antinuclear antibody positive [Unknown]
  - Muscle spasms [Recovering/Resolving]
  - Abdominal pain [Recovering/Resolving]

NARRATIVE: CASE EVENT DATE: 20151015
